FAERS Safety Report 22108217 (Version 1)
Quarter: 2023Q1

REPORT INFORMATION
  Report Type: Report from Study
  Country: KR (occurrence: KR)
  Receive Date: 20230317
  Receipt Date: 20230317
  Transmission Date: 20230418
  Serious: Yes (Other)
  Sender: FDA-Public Use
  Company Number: KR-002147023-NVSC2023KR059342

PATIENT
  Age: 70 Year
  Sex: Female

DRUGS (11)
  1. BEOVU [Suspect]
     Active Substance: BROLUCIZUMAB-DBLL
     Indication: Neovascular age-related macular degeneration
     Dosage: 6 MG
     Route: 031
     Dates: start: 20220317, end: 20220317
  2. BEOVU [Suspect]
     Active Substance: BROLUCIZUMAB-DBLL
     Dosage: 6 MG
     Route: 031
     Dates: start: 20220512, end: 20220512
  3. OROCIN [Concomitant]
     Indication: Evidence based treatment
     Dosage: 1 DRP, 1
     Route: 047
     Dates: start: 20220317, end: 20220317
  4. OROCIN [Concomitant]
     Dosage: 1 DRP, 1
     Route: 047
     Dates: start: 20220512, end: 20220512
  5. OCUFLOX [Concomitant]
     Active Substance: OFLOXACIN
     Indication: Evidence based treatment
     Dosage: 1 DRP, 1
     Route: 047
     Dates: start: 20220317, end: 20220317
  6. OCUFLOX [Concomitant]
     Active Substance: OFLOXACIN
     Dosage: 1 DRP, 1
     Route: 047
     Dates: start: 20220512, end: 20220512
  7. PARACAINE [Concomitant]
     Active Substance: PROPARACAINE HYDROCHLORIDE
     Indication: Evidence based treatment
     Dosage: 1 DRP, 1
     Route: 047
     Dates: start: 20220317, end: 20220317
  8. PARACAINE [Concomitant]
     Active Substance: PROPARACAINE HYDROCHLORIDE
     Dosage: 1 DRP, 1
     Route: 047
     Dates: start: 20220512, end: 20220512
  9. VIGAMOX [Concomitant]
     Active Substance: MOXIFLOXACIN HYDROCHLORIDE
     Indication: Evidence based treatment
     Dosage: 1 DRP, 3
     Route: 047
     Dates: start: 20220317, end: 20220319
  10. VIGAMOX [Concomitant]
     Active Substance: MOXIFLOXACIN HYDROCHLORIDE
     Dosage: 1 DRP, 3
     Route: 047
     Dates: start: 20220512, end: 20220514
  11. NEWHYALDROP [Concomitant]
     Indication: Evidence based treatment
     Dosage: 1 DRP, 6 (IN 5 ML)
     Route: 047
     Dates: start: 20220317, end: 202210

REACTIONS (1)
  - Idiopathic orbital inflammation [Recovered/Resolved]

NARRATIVE: CASE EVENT DATE: 20220512
